FAERS Safety Report 18182329 (Version 1)
Quarter: 2020Q3

REPORT INFORMATION
  Report Type: Spontaneous
  Country: GB (occurrence: GB)
  Receive Date: 20200821
  Receipt Date: 20200821
  Transmission Date: 20201103
  Serious: Yes (Other)
  Sender: FDA-Public Use
  Company Number: GB-TEVA-2020-GB-1816090

PATIENT
  Age: 45 Year
  Sex: Female

DRUGS (5)
  1. CARBAMAZEPINE. [Suspect]
     Active Substance: CARBAMAZEPINE
     Indication: BIPOLAR II DISORDER
  2. NAPROXEN. [Concomitant]
     Active Substance: NAPROXEN
  3. AMITRIPTYLINE [Concomitant]
     Active Substance: AMITRIPTYLINE
  4. GABAPENTIN. [Concomitant]
     Active Substance: GABAPENTIN
  5. OXYBUTYNIN HYDROCHLORIDE [Suspect]
     Active Substance: OXYBUTYNIN CHLORIDE
     Indication: MICTURITION URGENCY
     Dosage: 10 MG
     Route: 048
     Dates: start: 20200702

REACTIONS (5)
  - Bipolar disorder [Unknown]
  - Mania [Unknown]
  - Depression [Unknown]
  - Therapeutic product effect decreased [Not Recovered/Not Resolved]
  - Drug interaction [Unknown]

NARRATIVE: CASE EVENT DATE: 20200709
